FAERS Safety Report 9367473 (Version 1)
Quarter: 2013Q2

REPORT INFORMATION
  Report Type: Spontaneous
  Country: US (occurrence: US)
  Receive Date: 20130625
  Receipt Date: 20130625
  Transmission Date: 20140414
  Serious: No
  Sender: FDA-Public Use
  Company Number: US-ASTELLAS-2012US006927

PATIENT
  Sex: Male

DRUGS (2)
  1. VESICARE [Suspect]
     Indication: POLYURIA
     Dosage: 10 MG, UNKNOWN/D
     Route: 048
     Dates: start: 20120711, end: 20120810
  2. VESICARE [Suspect]
     Indication: PROSTATIC DISORDER

REACTIONS (6)
  - Off label use [Unknown]
  - Asthenopia [Recovering/Resolving]
  - Eye irritation [Recovering/Resolving]
  - Neck pain [Not Recovered/Not Resolved]
  - Headache [Not Recovered/Not Resolved]
  - Fatigue [Not Recovered/Not Resolved]
